FAERS Safety Report 6695921-3 (Version None)
Quarter: 2010Q2

REPORT INFORMATION
  Report Type: 
  Country: None (occurrence: None)
  Receive Date: 20100422
  Receipt Date: 20100422
  Transmission Date: 20101027
  Serious: No
  Sender: FDA-Public Use
  Company Number: None

PATIENT
  Sex: Male
  Weight: 13.7 kg

DRUGS (3)
  1. METHOTREXATE [Suspect]
     Dosage: 162 MG
     Dates: end: 20100318
  2. PEG-L ASPARAGINASE (PEGASPARGASE, ONCOSPAR) [Suspect]
     Dosage: 1500 UNIT
     Dates: end: 20100309
  3. VINCRISTINE SULFATE [Suspect]
     Dosage: .9 MG
     Dates: end: 20100308

REACTIONS (1)
  - HYPERGLYCAEMIA [None]
